FAERS Safety Report 4783055-4 (Version None)
Quarter: 2005Q3

REPORT INFORMATION
  Report Type: 
  Country: None (occurrence: None)
  Receive Date: 20050928
  Receipt Date: 20050928
  Transmission Date: 20060218
  Serious: Yes (Other)
  Sender: FDA-Public Use
  Company Number: None

PATIENT
  Sex: Female
  Weight: 58.9676 kg

DRUGS (4)
  1. HUMIRA [Suspect]
     Indication: RHEUMATOID ARTHRITIS
     Dosage: SUB Q INJECTION 40MG QOWK
     Route: 058
     Dates: start: 20050101
  2. PREDNISONE [Concomitant]
  3. ESTROGEN [Concomitant]
  4. EFFEXOR [Concomitant]

REACTIONS (3)
  - ALOPECIA [None]
  - DERMAL CYST [None]
  - SKIN EXFOLIATION [None]
